FAERS Safety Report 6778944-5 (Version None)
Quarter: 2010Q2

REPORT INFORMATION
  Report Type: 
  Country: None (occurrence: None)
  Receive Date: 20100618
  Receipt Date: 20100611
  Transmission Date: 20101027
  Serious: Yes (Hospitalization)
  Sender: FDA-Public Use
  Company Number: FR-JNJFOC-20100604275

PATIENT
  Age: 39 Year
  Sex: Male

DRUGS (2)
  1. HALDOL DECANOAS [Suspect]
     Indication: PSYCHOTIC DISORDER
     Route: 030
  2. HALDOL DECANOAS [Suspect]
     Indication: DELIRIUM
     Route: 030

REACTIONS (6)
  - BLOOD CREATINE PHOSPHOKINASE INCREASED [None]
  - MUSCLE CONTRACTURE [None]
  - OFF LABEL USE [None]
  - OVERDOSE [None]
  - PROTRUSION TONGUE [None]
  - SALIVARY HYPERSECRETION [None]
